FAERS Safety Report 8896053 (Version 1)
Quarter: 2012Q4

REPORT INFORMATION
  Report Type: 
  Country: US (occurrence: US)
  Receive Date: 20121108
  Receipt Date: 20121108
  Transmission Date: 20130627
  Serious: No
  Sender: FDA-Public Use
  Company Number: US-ASTRAZENECA-2012SE79564

PATIENT
  Age: 62 Year
  Sex: Female
  Weight: 81.6 kg

DRUGS (9)
  1. SYMBICORT [Suspect]
     Indication: CHRONIC OBSTRUCTIVE PULMONARY DISEASE
     Dosage: 80 MCG TWO PUFFS, BID
     Route: 055
  2. SYMBICORT [Suspect]
     Indication: CHRONIC OBSTRUCTIVE PULMONARY DISEASE
     Dosage: SEVEREAL TIMES DAILY
     Route: 055
  3. RENEXA [Concomitant]
     Indication: CARDIAC DISORDER
     Route: 048
  4. PLAVIX [Concomitant]
     Indication: CARDIAC DISORDER
     Route: 048
  5. WATER PILL [Concomitant]
     Indication: CARDIAC DISORDER
     Route: 048
  6. GENERIC XANAX [Concomitant]
     Indication: CARDIAC DISORDER
     Route: 048
  7. ASPIRIN/CARTIA [Concomitant]
     Indication: CARDIAC DISORDER
     Route: 048
  8. GENERIC LIPITOR [Concomitant]
     Indication: CARDIAC DISORDER
     Route: 048
  9. ALBUTEROL [Concomitant]
     Indication: ILL-DEFINED DISORDER
     Dosage: INCREASED, PRN
     Route: 055

REACTIONS (2)
  - Dyspnoea [Unknown]
  - Incorrect dose administered by device [Unknown]
